FAERS Safety Report 6163780-3 (Version None)
Quarter: 2009Q2

REPORT INFORMATION
  Report Type: 
  Country: None (occurrence: None)
  Receive Date: 20090420
  Receipt Date: 20090420
  Transmission Date: 20091009
  Serious: Yes (Hospitalization)
  Sender: FDA-Public Use
  Company Number: None

PATIENT
  Sex: Female
  Weight: 50 kg

DRUGS (3)
  1. LIDOCAINE 2% [Suspect]
     Indication: NERVE BLOCK
     Dosage: 40CC OF 0.5% LIDOCAINE X 1 TO PT CERVICAL
     Dates: start: 20090416
  2. DIPRIVAN [Concomitant]
  3. FENTANYL [Concomitant]

REACTIONS (9)
  - BLOOD PRESSURE DIASTOLIC DECREASED [None]
  - BLOOD PRESSURE SYSTOLIC INCREASED [None]
  - DRUG EXPOSURE DURING PREGNANCY [None]
  - ENDOTRACHEAL INTUBATION COMPLICATION [None]
  - GRAND MAL CONVULSION [None]
  - OXYGEN SATURATION DECREASED [None]
  - RESPIRATORY DISORDER [None]
  - TACHYCARDIA [None]
  - UNRESPONSIVE TO STIMULI [None]
